FAERS Safety Report 17445936 (Version 3)
Quarter: 2020Q2

REPORT INFORMATION
  Report Type: Report from Study
  Country: LB (occurrence: LB)
  Receive Date: 20200221
  Receipt Date: 20200422
  Transmission Date: 20200713
  Serious: Yes (Hospitalization, Other)
  Sender: FDA-Public Use
  Company Number: NVSC2020LB017062

PATIENT
  Age: 39 Year
  Sex: Female

DRUGS (7)
  1. GILENYA [Suspect]
     Active Substance: FINGOLIMOD HYDROCHLORIDE
     Dosage: 0.5 MG, QD
     Route: 048
     Dates: end: 20200111
  2. GILENYA [Suspect]
     Active Substance: FINGOLIMOD HYDROCHLORIDE
     Indication: RELAPSING-REMITTING MULTIPLE SCLEROSIS
     Dosage: 0.5 MG, QD
     Route: 048
     Dates: start: 20140101, end: 20200109
  3. ZOVIRAX [Concomitant]
     Active Substance: ACYCLOVIR
     Indication: MENINGITIS CRYPTOCOCCAL
     Route: 065
  4. HMS [Concomitant]
     Active Substance: MEDRYSONE
     Indication: PRODUCT USED FOR UNKNOWN INDICATION
     Dosage: UNK
     Route: 048
  5. FAMPYRA [Concomitant]
     Active Substance: DALFAMPRIDINE
     Indication: PRODUCT USED FOR UNKNOWN INDICATION
     Dosage: UNK
     Route: 048
  6. VANCOMYCIN [Concomitant]
     Active Substance: VANCOMYCIN
     Indication: MENINGITIS CRYPTOCOCCAL
     Dosage: UNK
     Route: 065
  7. MERONEM [Concomitant]
     Active Substance: MEROPENEM
     Indication: MENINGITIS CRYPTOCOCCAL
     Dosage: UNK
     Route: 065

REACTIONS (11)
  - Gait inability [Recovered/Resolved with Sequelae]
  - Epilepsy [Recovered/Resolved with Sequelae]
  - Hemiparesis [Unknown]
  - Facial neuralgia [Unknown]
  - Brain abscess [Not Recovered/Not Resolved]
  - Lymphocyte count decreased [Recovered/Resolved with Sequelae]
  - Central nervous system lesion [Not Recovered/Not Resolved]
  - Multiple sclerosis relapse [Unknown]
  - Metastases to central nervous system [Unknown]
  - Muscular weakness [Unknown]
  - Lethargy [Recovered/Resolved with Sequelae]

NARRATIVE: CASE EVENT DATE: 20200109
